FAERS Safety Report 4555279-2 (Version None)
Quarter: 2005Q1

REPORT INFORMATION
  Report Type: 
  Country: None (occurrence: None)
  Receive Date: 20041227
  Receipt Date: 20040816
  Transmission Date: 20050727
  Serious: No
  Sender: FDA-Public Use
  Company Number: US087558

PATIENT
  Age: 68 Year
  Sex: Male

DRUGS (2)
  1. ARANESP [Suspect]
     Indication: MYELODYSPLASTIC SYNDROME
     Dosage: 1 IN 1 WEEKS, SC
     Route: 058
     Dates: start: 20040225
  2. METOPROLOL [Concomitant]

REACTIONS (2)
  - HEADACHE [None]
  - SKIN LESION [None]
